FAERS Safety Report 6593086-X (Version None)
Quarter: 2010Q1

REPORT INFORMATION
  Report Type: 
  Country: None (occurrence: None)
  Receive Date: 20100212
  Receipt Date: 20100126
  Transmission Date: 20100710
  Serious: Yes (Death, Other)
  Sender: FDA-Public Use
  Company Number: CLOF-1000722

PATIENT
  Age: 43 Year
  Sex: Female
  Weight: 88 kg

DRUGS (11)
  1. EVOLTRA (CLOFARABINE) [Suspect]
     Indication: ACUTE MYELOID LEUKAEMIA
     Dosage: 40 MG/M2, QDX5, INTRAVENOUS
     Route: 042
     Dates: start: 20090921, end: 20090924
  2. CYTARABINE [Suspect]
     Indication: ACUTE MYELOID LEUKAEMIA
     Dosage: 1 G/M2, QD, INTRAVENOUS;  2 G/M2, QDX5
     Route: 042
     Dates: start: 20090921, end: 20090924
  3. MYLOTARG [Suspect]
     Indication: ACUTE MYELOID LEUKAEMIA
     Dosage: 6 MG/M2, ONCE, INTRAVENOUS
     Route: 042
     Dates: start: 20090921, end: 20090921
  4. FLUDARABINE PHOSPHATE [Suspect]
     Dosage: 30 MG/M2, QDX5, INTRAVENOUS
     Route: 042
  5. G-CSF (GRANULOCYTE COLONY STIMULATING FACTOR) [Suspect]
     Indication: ACUTE MYELOID LEUKAEMIA
     Dosage: 30 OTHER, QD, SUBCUTANEOUS
     Route: 058
  6. AMBISOME [Concomitant]
  7. RASBURICASE [Suspect]
  8. NEXIUM IV [Concomitant]
  9. VALTREX [Concomitant]
  10. PIPERACILLIN SODIUM AND TAZOBACTAM SODIUM [Concomitant]
  11. IDARUBICIN HCL [Suspect]
     Indication: ACUTE MYELOID LEUKAEMIA
     Dosage: 10 MG/M2 QD
     Route: 042

REACTIONS (13)
  - BLOOD POTASSIUM INCREASED [None]
  - CARDIAC ENZYMES INCREASED [None]
  - CHEST PAIN [None]
  - ELECTROCARDIOGRAM ABNORMAL [None]
  - HAEMODIALYSIS [None]
  - LEUKAEMIA RECURRENT [None]
  - METABOLIC ACIDOSIS [None]
  - MULTI-ORGAN FAILURE [None]
  - PERICARDITIS [None]
  - PLATELET COUNT DECREASED [None]
  - RENAL IMPAIRMENT [None]
  - RESPIRATORY DISORDER [None]
  - SEPTIC SHOCK [None]
